FAERS Safety Report 6035711-8 (Version None)
Quarter: 2009Q1

REPORT INFORMATION
  Report Type: 
  Country: None (occurrence: None)
  Receive Date: 20090112
  Receipt Date: 20090112
  Transmission Date: 20090719
  Serious: Yes (Other)
  Sender: FDA-Public Use
  Company Number: None

PATIENT
  Sex: Female
  Weight: 24.9478 kg

DRUGS (1)
  1. CONCERTA [Suspect]
     Indication: ATTENTION DEFICIT/HYPERACTIVITY DISORDER
     Dosage: 18 MG -1 TABLET- ONCE PER DAY PO
     Route: 048
     Dates: start: 20081122, end: 20081125

REACTIONS (3)
  - DEPRESSION [None]
  - FAMILIAL RISK FACTOR [None]
  - MOOD SWINGS [None]
